FAERS Safety Report 13082500 (Version 1)
Quarter: 2017Q1

REPORT INFORMATION
  Report Type: Spontaneous
  Country: JP (occurrence: JP)
  Receive Date: 20170103
  Receipt Date: 20170103
  Transmission Date: 20170428
  Serious: Yes (Other)
  Sender: FDA-Public Use
  Company Number: JP-MYLANLABS-2016M1052789

PATIENT

DRUGS (3)
  1. EPIRUBICIN MYLAN [Suspect]
     Active Substance: EPIRUBICIN
     Indication: HEPATOCELLULAR CARCINOMA
     Dosage: 30 MG/DAY
     Route: 013
     Dates: start: 20160725, end: 20160725
  2. CISPLATIN. [Suspect]
     Active Substance: CISPLATIN
     Indication: HEPATOCELLULAR CARCINOMA
     Dosage: 10 MG/DAY
     Route: 013
     Dates: start: 20161017, end: 20161017
  3. 5-FU                               /00098801/ [Suspect]
     Active Substance: FLUOROURACIL
     Indication: HEPATOCELLULAR CARCINOMA
     Dosage: 200 MG/DAY
     Route: 013
     Dates: start: 20161017, end: 20161017

REACTIONS (1)
  - Vascular dissection [Recovered/Resolved]

NARRATIVE: CASE EVENT DATE: 20161026
